FAERS Safety Report 5322915-2 (Version None)
Quarter: 2007Q2

REPORT INFORMATION
  Report Type: 
  Country: None (occurrence: None)
  Receive Date: 20070511
  Receipt Date: 20070423
  Transmission Date: 20071010
  Serious: Yes (Hospitalization)
  Sender: FDA-Public Use
  Company Number: JP-PFIZER INC-2007022384

PATIENT
  Sex: Female

DRUGS (4)
  1. MIGLITOL TABLET [Suspect]
     Indication: DIABETES MELLITUS NON-INSULIN-DEPENDENT
     Route: 048
     Dates: start: 20070228, end: 20070302
  2. ACTOS [Suspect]
     Indication: DIABETES MELLITUS NON-INSULIN-DEPENDENT
     Dosage: DAILY DOSE:15MG
     Route: 048
     Dates: start: 20070131, end: 20070302
  3. AMARYL [Concomitant]
     Indication: DIABETES MELLITUS NON-INSULIN-DEPENDENT
     Dosage: DAILY DOSE:6MG
     Route: 048
     Dates: start: 20010622, end: 20070302
  4. MELBIN [Concomitant]
     Indication: DIABETES MELLITUS NON-INSULIN-DEPENDENT
     Dosage: DAILY DOSE:750MG
     Route: 048
     Dates: start: 20040604, end: 20070302

REACTIONS (6)
  - ABDOMINAL PAIN UPPER [None]
  - HEPATIC STEATOSIS [None]
  - JAUNDICE [None]
  - LIVER DISORDER [None]
  - NAUSEA [None]
  - VOMITING [None]
